FAERS Safety Report 9464529 (Version 1)
Quarter: 2013Q3

REPORT INFORMATION
  Report Type: Report from Study
  Country: CA (occurrence: CA)
  Receive Date: 20130819
  Receipt Date: 20130819
  Transmission Date: 20140515
  Serious: Yes (Hospitalization)
  Sender: FDA-Public Use
  Company Number: CA-JNJFOC-20130807032

PATIENT
  Age: 59 Year
  Sex: Female
  Weight: 44.5 kg

DRUGS (17)
  1. REMICADE [Suspect]
     Indication: CROHN^S DISEASE
     Dosage: FIRST DOSE
     Route: 042
     Dates: start: 20130802
  2. PREDNISONE [Concomitant]
     Route: 048
  3. CALCIUM CARBONATE [Concomitant]
     Route: 048
  4. FERROUS FUMARATE [Concomitant]
     Route: 048
  5. ISONIAZID [Concomitant]
     Route: 048
  6. METFORMIN [Concomitant]
     Dosage: BREAKFAST AND SUPPER
     Route: 048
  7. METFORMIN [Concomitant]
     Dosage: LUNCH
     Route: 048
  8. METOPROLOL [Concomitant]
     Route: 048
  9. PYRIDOXINE [Concomitant]
     Route: 048
  10. MULTIVITAMINS [Concomitant]
     Route: 048
  11. VALSARTAN [Concomitant]
     Route: 048
  12. VALPROIC ACID [Concomitant]
     Dosage: BUD
     Route: 048
  13. QUETIAPINE [Concomitant]
     Route: 048
  14. VITAMIN D [Concomitant]
     Route: 048
  15. VITAMIN B12 [Concomitant]
     Route: 048
  16. NOVORAPID INSULIN [Concomitant]
     Route: 065
  17. INSULIN  NPH [Concomitant]
     Dosage: 10 UNITS BEFORE BREAKFAST
     Route: 058

REACTIONS (2)
  - Fall [Unknown]
  - Dizziness [Unknown]
